FAERS Safety Report 13783988 (Version 1)
Quarter: 2017Q3

REPORT INFORMATION
  Report Type: Report from Study
  Country: ZA (occurrence: ZA)
  Receive Date: 20170724
  Receipt Date: 20170724
  Transmission Date: 20171127
  Serious: Yes (Death)
  Sender: FDA-Public Use
  Company Number: PHHY2017ZA103078

PATIENT
  Age: 78 Year
  Sex: Female

DRUGS (1)
  1. ISOSORBIDE DINITRATE SANDOZ [Suspect]
     Active Substance: ISOSORBIDE DINITRATE
     Indication: ANGINA PECTORIS
     Dosage: 5 MG, UNK
     Route: 048
     Dates: start: 20170131, end: 20170515

REACTIONS (1)
  - Death [Fatal]

NARRATIVE: CASE EVENT DATE: 20170515
